FAERS Safety Report 24362107 (Version 1)
Quarter: 2024Q3

REPORT INFORMATION
  Report Type: Spontaneous
  Country: CA (occurrence: CA)
  Receive Date: 20240925
  Receipt Date: 20240925
  Transmission Date: 20241017
  Serious: Yes (Other)
  Sender: TEVA
  Company Number: CA-TEVA-VS-3246848

PATIENT
  Sex: Female

DRUGS (1)
  1. CEPHALEXIN [Suspect]
     Active Substance: CEPHALEXIN
     Indication: Product used for unknown indication
     Route: 065
     Dates: start: 2024

REACTIONS (1)
  - Haemoptysis [Unknown]

NARRATIVE: CASE EVENT DATE: 20240101
